FAERS Safety Report 4398169-0 (Version None)
Quarter: 2004Q3

REPORT INFORMATION
  Report Type: 
  Country: None (occurrence: None)
  Receive Date: 20040714
  Receipt Date: 20040714
  Transmission Date: 20050211
  Serious: Yes (Hospitalization)
  Sender: FDA-Public Use
  Company Number: None

PATIENT
  Age: 82 Year
  Sex: Female
  Weight: 72.5755 kg

DRUGS (7)
  1. ASPIRIN [Suspect]
     Indication: BACK PAIN
     Dosage: 325 MG QD
  2. ALEVE [Suspect]
     Indication: BACK PAIN
     Dosage: 2 TABS 3-4DAYS/WK
  3. TIAZAC [Concomitant]
  4. DYAZIDE [Concomitant]
  5. LIPITOR [Concomitant]
  6. POTASSIUM [Concomitant]
  7. CALCIUM [Concomitant]

REACTIONS (2)
  - DIVERTICULITIS [None]
  - GASTROINTESTINAL HAEMORRHAGE [None]
